FAERS Safety Report 4739894-9 (Version None)
Quarter: 2005Q3

REPORT INFORMATION
  Report Type: 
  Country: None (occurrence: None)
  Receive Date: 20050810
  Receipt Date: 20010907
  Transmission Date: 20060218
  Serious: No
  Sender: FDA-Public Use
  Company Number: US-GLAXOSMITHKLINE-A0352942A

PATIENT
  Age: 37 Year
  Sex: Female
  Weight: 113.38 kg

DRUGS (4)
  1. PAXIL [Suspect]
     Indication: DEPRESSION
     Dosage: 45MG PER DAY
     Route: 048
  2. RISPERDAL [Concomitant]
  3. PLAQUENIL [Concomitant]
  4. DICLOFENAC [Concomitant]

REACTIONS (7)
  - DEPERSONALISATION [None]
  - DISORIENTATION [None]
  - DRUG WITHDRAWAL SYNDROME [None]
  - LOSS OF CONSCIOUSNESS [None]
  - PARAESTHESIA [None]
  - PERFORMANCE STATUS DECREASED [None]
  - SENSORY DISTURBANCE [None]
